FAERS Safety Report 20473590 (Version 3)
Quarter: 2022Q1

REPORT INFORMATION
  Report Type: Spontaneous
  Country: US (occurrence: US)
  Receive Date: 20220215
  Receipt Date: 20220228
  Transmission Date: 20220424
  Serious: Yes (Other)
  Sender: FDA-Public Use
  Company Number: US-BAYER-2022A022013

PATIENT
  Age: 31 Year
  Sex: Female
  Weight: 126.98 kg

DRUGS (1)
  1. MIRENA [Suspect]
     Active Substance: LEVONORGESTREL
     Indication: Contraception
     Dosage: 20?G/DAY
     Route: 015
     Dates: start: 20190404

REACTIONS (4)
  - Ectopic pregnancy with contraceptive device [Recovered/Resolved]
  - Ruptured ectopic pregnancy [Recovered/Resolved]
  - Drug ineffective [None]
  - Pelvic pain [None]

NARRATIVE: CASE EVENT DATE: 20220126
